FAERS Safety Report 6059369-7 (Version None)
Quarter: 2009Q1

REPORT INFORMATION
  Report Type: 
  Country: None (occurrence: None)
  Receive Date: 20090130
  Receipt Date: 20090122
  Transmission Date: 20090719
  Serious: Yes (Hospitalization)
  Sender: FDA-Public Use
  Company Number: CA-SANOFI-SYNTHELABO-A01200900756

PATIENT
  Sex: Male

DRUGS (8)
  1. ATENOLOL [Concomitant]
     Indication: HYPERTENSION
     Route: 048
     Dates: start: 20081211
  2. GLUMETZA [Concomitant]
     Indication: DIABETES MELLITUS
     Route: 048
     Dates: start: 20081106
  3. ASPIRIN [Concomitant]
     Indication: CARDIAC DISORDER
     Dosage: UNK
     Route: 065
  4. E5555/PLACEBO [Suspect]
     Indication: ACUTE CORONARY SYNDROME
     Dosage: LOADING DOSE FOLLOWED BY 50 MG, 100 MG OR 200 MG
     Route: 048
     Dates: start: 20081211, end: 20090101
  5. CLOPIDOGREL [Suspect]
     Indication: CARDIAC DISORDER
     Route: 048
     Dates: start: 20081211
  6. ATORVASTATIN [Suspect]
     Indication: HYPERCHOLESTEROLAEMIA
     Route: 048
     Dates: start: 20081106, end: 20081212
  7. ATORVASTATIN [Suspect]
     Route: 048
     Dates: start: 20081213, end: 20090103
  8. ATORVASTATIN [Suspect]
     Route: 048
     Dates: start: 20090104

REACTIONS (2)
  - PAIN IN EXTREMITY [None]
  - RASH [None]
